FAERS Safety Report 16480208 (Version 3)
Quarter: 2019Q3

REPORT INFORMATION
  Report Type: Spontaneous
  Country: US (occurrence: US)
  Receive Date: 20190626
  Receipt Date: 20190806
  Transmission Date: 20191004
  Serious: No
  Sender: FDA-Public Use
  Company Number: US-ASTRAZENECA-2019SE89406

PATIENT
  Age: 19782 Day
  Sex: Female
  Weight: 145.2 kg

DRUGS (2)
  1. NOVOLOG [Concomitant]
     Active Substance: INSULIN ASPART
  2. BYDUREON [Suspect]
     Active Substance: EXENATIDE
     Indication: INSULIN-REQUIRING TYPE 2 DIABETES MELLITUS
     Route: 058
     Dates: start: 20190617

REACTIONS (5)
  - Circumstance or information capable of leading to medication error [Unknown]
  - Nausea [Unknown]
  - Injection site extravasation [Unknown]
  - Headache [Unknown]
  - Injection site pruritus [Unknown]

NARRATIVE: CASE EVENT DATE: 20190617
